FAERS Safety Report 5752231-6 (Version None)
Quarter: 2008Q2

REPORT INFORMATION
  Report Type: 
  Country: None (occurrence: None)
  Receive Date: 20080527
  Receipt Date: 20080509
  Transmission Date: 20081010
  Serious: Yes (Death)
  Sender: FDA-Public Use
  Company Number: 2008AL004364

PATIENT
  Age: 66 Year
  Sex: Male
  Weight: 81.6475 kg

DRUGS (4)
  1. DIGOXIN [Suspect]
     Indication: ARRHYTHMIA
     Dosage: 0.125 MG ORAL
     Route: 048
     Dates: start: 20070301
  2. THYROID TAB [Concomitant]
  3. CHOLESTEROL MEDICATION [Concomitant]
  4. ASPIRIN [Concomitant]

REACTIONS (3)
  - CARDIAC ARREST [None]
  - DYSPNOEA [None]
  - UNRESPONSIVE TO STIMULI [None]
